FAERS Safety Report 22069120 (Version 1)
Quarter: 2023Q1

REPORT INFORMATION
  Report Type: Spontaneous
  Country: US (occurrence: None)
  Receive Date: 20230306
  Receipt Date: 20230306
  Transmission Date: 20230417
  Serious: Yes (Other)
  Sender: FDA-Public Use
  Company Number: None

PATIENT
  Age: 64 Year
  Sex: Female
  Weight: 56.25 kg

DRUGS (12)
  1. PREGABALIN [Suspect]
     Active Substance: PREGABALIN
     Indication: Neuropathy peripheral
     Dosage: 180 CAPSULES TWICE A DAY ORAL
     Route: 048
  2. DITROPAN [Concomitant]
     Active Substance: OXYBUTYNIN CHLORIDE
  3. CYMBALTA [Concomitant]
     Active Substance: DULOXETINE HYDROCHLORIDE
  4. LYRICA [Concomitant]
     Active Substance: PREGABALIN
  5. NALTREXONE [Concomitant]
     Active Substance: NALTREXONE
  6. Vitamin D3 and K [Concomitant]
  7. CALCIUM GLYCEROPHOSPHATE [Concomitant]
     Active Substance: CALCIUM GLYCEROPHOSPHATE
  8. PROBIOTICS NOS [Concomitant]
     Active Substance: PROBIOTICS NOS
  9. D MANNOSE [Concomitant]
  10. CRANBERRY [Concomitant]
     Active Substance: CRANBERRY
  11. BIOTIN [Concomitant]
     Active Substance: BIOTIN
  12. MANUAL WHEELCHAIR [Concomitant]

REACTIONS (3)
  - Product substitution issue [None]
  - Drug effect less than expected [None]
  - Inadequate analgesia [None]

NARRATIVE: CASE EVENT DATE: 20230306
